FAERS Safety Report 9260392 (Version 1)
Quarter: 2013Q2

REPORT INFORMATION
  Report Type: Report from Study
  Country: PH (occurrence: PH)
  Receive Date: 20130429
  Receipt Date: 20130429
  Transmission Date: 20140414
  Serious: Yes (Death, Other)
  Sender: FDA-Public Use
  Company Number: PHHY2013PH033117

PATIENT
  Sex: Male

DRUGS (5)
  1. GLIVEC [Suspect]
     Indication: CHRONIC MYELOID LEUKAEMIA
     Dosage: 400 MG/DAY
     Route: 048
     Dates: start: 20110225, end: 20110516
  2. GLIVEC [Suspect]
     Dosage: 300 MG/DAY
     Route: 048
     Dates: start: 20110516, end: 20120320
  3. GLIVEC [Suspect]
     Dosage: 400 MG/DAY
     Route: 048
     Dates: start: 20120320, end: 20121205
  4. GLIVEC [Suspect]
     Dosage: 500 MG/DAY
     Route: 048
     Dates: start: 20121205, end: 20130321
  5. GLIVEC [Suspect]
     Dosage: 600 MG/DAY
     Route: 048
     Dates: start: 20130405

REACTIONS (4)
  - Death [Fatal]
  - Chronic myeloid leukaemia transformation [Unknown]
  - Convulsion [Unknown]
  - Throat tightness [Unknown]
